FAERS Safety Report 19744113 (Version 1)
Quarter: 2021Q3

REPORT INFORMATION
  Report Type: Spontaneous
  Country: US (occurrence: US)
  Receive Date: 20210825
  Receipt Date: 20210825
  Transmission Date: 20211014
  Serious: Yes (Hospitalization)
  Sender: FDA-Public Use
  Company Number: US-BRISTOL-MYERS SQUIBB COMPANY-BMS-2021-084273

PATIENT
  Age: 61 Year
  Sex: Female

DRUGS (4)
  1. XYLOCAINE [Concomitant]
     Active Substance: LIDOCAINE HYDROCHLORIDE
     Indication: TENOSYNOVITIS
     Dosage: HAND: 1 PERCENT
     Route: 065
     Dates: start: 20190829
  2. KENALOG [Suspect]
     Active Substance: TRIAMCINOLONE ACETONIDE
     Indication: TENOSYNOVITIS
     Dosage: HAND: 40
     Route: 065
     Dates: start: 20190829
  3. XYLOCAINE [Concomitant]
     Active Substance: LIDOCAINE HYDROCHLORIDE
     Indication: OSTEOARTHRITIS
  4. KENALOG [Suspect]
     Active Substance: TRIAMCINOLONE ACETONIDE
     Indication: OSTEOARTHRITIS

REACTIONS (1)
  - Pain [Unknown]

NARRATIVE: CASE EVENT DATE: 20190913
